FAERS Safety Report 18338010 (Version 1)
Quarter: 2020Q4

REPORT INFORMATION
  Report Type: Spontaneous
  Country: US (occurrence: US)
  Receive Date: 20201001
  Receipt Date: 20201001
  Transmission Date: 20210113
  Serious: Yes (Hospitalization)
  Sender: FDA-Public Use
  Company Number: None

PATIENT
  Age: 37 Year
  Sex: Female
  Weight: 124.2 kg

DRUGS (1)
  1. REMDESIVIR. [Suspect]
     Active Substance: REMDESIVIR

REACTIONS (7)
  - Alanine aminotransferase increased [None]
  - Respiratory disorder [None]
  - Aspartate aminotransferase increased [None]
  - Aspiration [None]
  - Procedural haemorrhage [None]
  - Maternal exposure during pregnancy [None]
  - Foetal exposure during pregnancy [None]
